FAERS Safety Report 6987239-6 (Version None)
Quarter: 2010Q3

REPORT INFORMATION
  Report Type: 
  Country: None (occurrence: None)
  Receive Date: 20100827
  Receipt Date: 20100205
  Transmission Date: 20110219
  Serious: Yes (Other)
  Sender: FDA-Public Use
  Company Number: AMAG201000081

PATIENT
  Age: 65 Year
  Sex: Male
  Weight: 99.3 kg

DRUGS (17)
  1. FERAHEME [Suspect]
     Indication: IRON DEFICIENCY ANAEMIA
     Dosage: 510 MG, SINGLE, INTRAVENOUS ; 510 MG, SINGLE, INTRAVENOUS
     Route: 042
     Dates: start: 20091120, end: 20091120
  2. FERAHEME [Suspect]
     Indication: IRON DEFICIENCY ANAEMIA
     Dosage: 510 MG, SINGLE, INTRAVENOUS ; 510 MG, SINGLE, INTRAVENOUS
     Route: 042
     Dates: start: 20100204, end: 20100204
  3. ALBUTEROL [Concomitant]
  4. ALDACTONE (POTASSIUM CANRENOATE) [Concomitant]
  5. HYDRALAZINE (HYDRALAZINE HYDROCHLORIDE) [Concomitant]
  6. IMDUR [Concomitant]
  7. NPH INSULIN [Concomitant]
  8. FERROUS SULFATE TAB [Concomitant]
  9. POTASSIUM CHLORIDE [Concomitant]
  10. LACTULOSE [Concomitant]
  11. LASIX [Concomitant]
  12. MVI (VITAMINS NOS) [Concomitant]
  13. NITROSTAT [Concomitant]
  14. PROCRIT [Concomitant]
  15. PROZAC [Concomitant]
  16. RANITIDINE HCL [Concomitant]
  17. VITAMIN D [Concomitant]

REACTIONS (4)
  - DIZZINESS [None]
  - DYSPNOEA [None]
  - MUSCLE SPASMS [None]
  - NAUSEA [None]
